FAERS Safety Report 16560033 (Version 5)
Quarter: 2020Q4

REPORT INFORMATION
  Report Type: Spontaneous
  Country: CN (occurrence: CN)
  Receive Date: 20190711
  Receipt Date: 20201203
  Transmission Date: 20210113
  Serious: Yes (Death, Life-Threatening, Hospitalization, Other)
  Sender: FDA-Public Use
  Company Number: CN-BRACCO-2019CN03396

PATIENT
  Age: 74 Year
  Sex: Female

DRUGS (1)
  1. IOPAMIRO [Suspect]
     Active Substance: IOPAMIDOL
     Indication: VENOGRAM
     Dosage: UNK, SINGLE
     Route: 042
     Dates: start: 20190702, end: 20190702

REACTIONS (2)
  - Anaphylactic shock [Recovering/Resolving]
  - Hypoxic-ischaemic encephalopathy [Unknown]

NARRATIVE: CASE EVENT DATE: 20190702
